FAERS Safety Report 4831986-9 (Version None)
Quarter: 2005Q4

REPORT INFORMATION
  Report Type: 
  Country: None (occurrence: None)
  Receive Date: 20051118
  Receipt Date: 20051109
  Transmission Date: 20060501
  Serious: Yes (Other)
  Sender: FDA-Public Use
  Company Number: US-JNJFOC-20051104241

PATIENT
  Sex: Male
  Weight: 59.65 kg

DRUGS (3)
  1. CONCERTA [Suspect]
     Route: 048
     Dates: start: 20050419, end: 20050421
  2. STRATTERA [Suspect]
  3. AMOXIL [Concomitant]
     Indication: STREPTOCOCCAL INFECTION

REACTIONS (4)
  - LIVER FUNCTION TEST ABNORMAL [None]
  - MONONUCLEOSIS HETEROPHILE TEST POSITIVE [None]
  - RASH [None]
  - SUICIDE ATTEMPT [None]
